FAERS Safety Report 5952482-1 (Version None)
Quarter: 2008Q4

REPORT INFORMATION
  Report Type: 
  Country: None (occurrence: None)
  Receive Date: 20081113
  Receipt Date: 20081104
  Transmission Date: 20090506
  Serious: Yes (Life-Threatening, Other)
  Sender: FDA-Public Use
  Company Number: NL-PFIZER INC-2008090832

PATIENT
  Sex: Female
  Weight: 70 kg

DRUGS (2)
  1. ATORVASTATIN CALCIUM [Suspect]
     Indication: HYPERCHOLESTEROLAEMIA
     Route: 048
     Dates: start: 20080502, end: 20081019
  2. TRIAMTEREN [Concomitant]
     Route: 048
     Dates: start: 20000101

REACTIONS (1)
  - ANGIOEDEMA [None]
